FAERS Safety Report 5796660-3 (Version None)
Quarter: 2008Q3

REPORT INFORMATION
  Report Type: 
  Country: None (occurrence: None)
  Receive Date: 20080701
  Receipt Date: 20080620
  Transmission Date: 20090109
  Serious: Yes (Other)
  Sender: FDA-Public Use
  Company Number: AU-JNJFOC-20080604788

PATIENT
  Sex: Female

DRUGS (4)
  1. DURAGESIC-100 [Suspect]
     Indication: MIGRAINE
     Route: 062
  2. TRAMADOL HCL [Suspect]
     Indication: MIGRAINE
     Route: 065
  3. CLOZAPINE [Concomitant]
     Indication: SCHIZOPHRENIA
  4. SERTRALINE HYDROCHLORIDE [Concomitant]
     Indication: DRUG THERAPY

REACTIONS (2)
  - ORTHOSTATIC HYPOTENSION [None]
  - SEROTONIN SYNDROME [None]
